FAERS Safety Report 5604194-1 (Version None)
Quarter: 2008Q1

REPORT INFORMATION
  Report Type: 
  Country: None (occurrence: None)
  Receive Date: 20080124
  Receipt Date: 20080108
  Transmission Date: 20080703
  Serious: Yes (Other)
  Sender: FDA-Public Use
  Company Number: 022489

PATIENT
  Sex: Female

DRUGS (3)
  1. MEDROXYPROGESTERONE ACETATE [Suspect]
     Dosage: ORAL
     Route: 048
     Dates: start: 19900101, end: 20050101
  2. ESTRADIOL [Suspect]
     Dosage: ORAL
     Route: 048
     Dates: start: 19900101, end: 20050101
  3. COMBIPATCH [Suspect]
     Dates: start: 19900101, end: 20050101

REACTIONS (1)
  - BREAST CANCER FEMALE [None]
